FAERS Safety Report 24800040 (Version 1)
Quarter: 2025Q1

REPORT INFORMATION
  Report Type: Spontaneous
  Country: US (occurrence: None)
  Receive Date: 20250101
  Receipt Date: 20250101
  Transmission Date: 20250409
  Serious: Yes (Other)
  Sender: FDA-CTU
  Company Number: None

PATIENT
  Age: 65 Year
  Sex: Male
  Weight: 141.75 kg

DRUGS (11)
  1. SEMAGLUTIDE [Suspect]
     Active Substance: SEMAGLUTIDE
     Indication: Obesity
     Dates: start: 20241101, end: 20241117
  2. CYMBALTA [Concomitant]
     Active Substance: DULOXETINE HYDROCHLORIDE
  3. LAMICTAL [Concomitant]
     Active Substance: LAMOTRIGINE
  4. VERAPAMIL [Concomitant]
     Active Substance: VERAPAMIL HYDROCHLORIDE
  5. rivustatin [Concomitant]
  6. lisiopril [Concomitant]
  7. Vitamin d plus k [Concomitant]
  8. VITAMINS [Concomitant]
     Active Substance: VITAMINS
  9. FISH OIL [Concomitant]
     Active Substance: FISH OIL
  10. COENZYME Q10 [Concomitant]
     Active Substance: DIETARY SUPPLEMENT\UBIDECARENONE
  11. ZINC [Concomitant]
     Active Substance: ZINC

REACTIONS (2)
  - Dyspnoea [None]
  - Hypersensitivity [None]

NARRATIVE: CASE EVENT DATE: 20241101
